FAERS Safety Report 4852891-8 (Version None)
Quarter: 2005Q4

REPORT INFORMATION
  Report Type: 
  Country: None (occurrence: None)
  Receive Date: 20051212
  Receipt Date: 20051129
  Transmission Date: 20060501
  Serious: Yes (Hospitalization)
  Sender: FDA-Public Use
  Company Number: 2005163603

PATIENT
  Sex: Male

DRUGS (2)
  1. METHYLPEDNISOLONE SODIUM SUCCINATE [Suspect]
     Indication: DEMYELINATION
     Dosage: 1 GRAM, INTRAVENOUS
     Route: 042
     Dates: start: 20051028, end: 20051030
  2. SIMVASTATIN [Concomitant]

REACTIONS (1)
  - ATRIAL FIBRILLATION [None]
